FAERS Safety Report 15777230 (Version 1)
Quarter: 2018Q4

REPORT INFORMATION
  Report Type: Spontaneous
  Country: US (occurrence: US)
  Receive Date: 20181226
  Receipt Date: 20181226
  Transmission Date: 20190205
  Serious: No
  Sender: FDA-Public Use
  Company Number: None

PATIENT

DRUGS (1)
  1. MORPHINE SULFATE TABLETS (MSIR) MORPHINE SULFATE IR [Suspect]
     Active Substance: MORPHINE SULFATE
     Route: 048

REACTIONS (2)
  - Intercepted product dispensing error [None]
  - Product dispensing error [None]
